FAERS Safety Report 21573683 (Version 2)
Quarter: 2022Q4

REPORT INFORMATION
  Report Type: Spontaneous
  Country: DE (occurrence: DE)
  Receive Date: 20221109
  Receipt Date: 20221201
  Transmission Date: 20230113
  Serious: Yes (Hospitalization)
  Sender: FDA-Public Use
  Company Number: DE-ADRED-07721-01

PATIENT
  Age: 92 Year
  Sex: Female
  Weight: 80 kg

DRUGS (12)
  1. TRAMADOL [Suspect]
     Active Substance: TRAMADOL
     Indication: Product used for unknown indication
     Dosage: 100 MILLIGRAM, 1-0-1-0
     Route: 065
  2. ASPIRIN [Suspect]
     Active Substance: ASPIRIN
     Indication: Product used for unknown indication
     Dosage: 100 MG, 1-0-0-0
     Route: 065
  3. Eisen [Concomitant]
     Dosage: 100 MG, 1-0-0-0
     Route: 065
  4. RAMIPRIL [Concomitant]
     Active Substance: RAMIPRIL
     Dosage: 5 MG, 1-0-0-0
     Route: 065
  5. PANTOPRAZOLE SODIUM [Concomitant]
     Active Substance: PANTOPRAZOLE SODIUM
     Dosage: 40 MG, 1-0-0-0
     Route: 065
  6. BISOPROLOL [Concomitant]
     Active Substance: BISOPROLOL
     Dosage: 5 MG, 1-0-0-0
     Route: 065
  7. OLANZAPINE [Concomitant]
     Active Substance: OLANZAPINE
     Dosage: 10 MG, 1-0-0.5-0
     Route: 065
  8. POLYETHYLENE GLYCOL\POTASSIUM CHLORIDE\SODIUM BICARBONATE\SODIUM CHLOR [Concomitant]
     Active Substance: POLYETHYLENE GLYCOL\POTASSIUM CHLORIDE\SODIUM BICARBONATE\SODIUM CHLORIDE
     Dosage: UNK, 1-0-0-0
     Route: 065
  9. SIMVASTATIN [Concomitant]
     Active Substance: SIMVASTATIN
     Dosage: 20 MILLIGRAM20 MG, 0-0-1-0
     Route: 065
  10. ALLOPURINOL [Concomitant]
     Active Substance: ALLOPURINOL
     Dosage: 300 MG, 1-0-0-0
     Route: 065
  11. TORSEMIDE [Concomitant]
     Active Substance: TORSEMIDE
     Dosage: 15 MG, 1-0-0-0
     Route: 065
  12. LACTULOSE [Concomitant]
     Active Substance: LACTULOSE
     Dosage: 20 ML, 1-0-0-0
     Route: 065

REACTIONS (14)
  - Renal impairment [Unknown]
  - Tachypnoea [Unknown]
  - Haematochezia [Unknown]
  - Oedema peripheral [Unknown]
  - Anaemia [Unknown]
  - Paresis [Unknown]
  - Atrial fibrillation [Unknown]
  - Upper gastrointestinal haemorrhage [Unknown]
  - General physical health deterioration [Unknown]
  - Disorientation [Unknown]
  - Hypotension [Unknown]
  - Electrocardiogram abnormal [Unknown]
  - Dyspnoea [Unknown]
  - Vomiting [Unknown]
